FAERS Safety Report 4624603-4 (Version None)
Quarter: 2005Q2

REPORT INFORMATION
  Report Type: 
  Country: None (occurrence: None)
  Receive Date: 20050325
  Receipt Date: 20050121
  Transmission Date: 20051028
  Serious: No
  Sender: FDA-Public Use
  Company Number: USA050188978

PATIENT
  Age: 57 Year
  Sex: Female
  Weight: 64 kg

DRUGS (7)
  1. FORTEO [Suspect]
     Indication: OSTEOPOROSIS
     Dosage: 20 UG/1 DAY
     Dates: start: 20041217
  2. METOPROLOL TARTRATE [Concomitant]
  3. DEPAKOTE [Concomitant]
  4. WELLBUTRIN [Concomitant]
  5. ARICEPT [Concomitant]
  6. IMITREX [Concomitant]
  7. CITRACAL (CALCIUM CITRATE) [Concomitant]

REACTIONS (4)
  - ASTHENIA [None]
  - DYSPHONIA [None]
  - FEELING ABNORMAL [None]
  - TREMOR [None]
